FAERS Safety Report 23353226 (Version 5)
Quarter: 2024Q3

REPORT INFORMATION
  Report Type: Report from Study
  Country: CO (occurrence: CO)
  Receive Date: 20231230
  Receipt Date: 20240927
  Transmission Date: 20241016
  Serious: Yes (Life-Threatening)
  Sender: NOVARTIS
  Company Number: CO-002147023-NVSC2023CO276221

PATIENT
  Age: 12 Year
  Sex: Female
  Weight: 55 kg

DRUGS (2)
  1. ELTROMBOPAG OLAMINE [Suspect]
     Active Substance: ELTROMBOPAG OLAMINE
     Indication: Immune thrombocytopenia
     Dosage: 50 MG, QD
     Route: 048
     Dates: start: 20231117
  2. ELTROMBOPAG OLAMINE [Suspect]
     Active Substance: ELTROMBOPAG OLAMINE
     Dosage: 50 MG, QD
     Route: 048
     Dates: start: 20231118, end: 20240910

REACTIONS (6)
  - Platelet count decreased [Recovered/Resolved]
  - Contusion [Unknown]
  - Menstruation irregular [Unknown]
  - Vaginal haemorrhage [Unknown]
  - Haematoma [Recovered/Resolved]
  - Limb injury [Recovered/Resolved]

NARRATIVE: CASE EVENT DATE: 20240918
